FAERS Safety Report 13653689 (Version 1)
Quarter: 2017Q2

REPORT INFORMATION
  Report Type: Spontaneous
  Country: GB (occurrence: GB)
  Receive Date: 20170614
  Receipt Date: 20170614
  Transmission Date: 20170830
  Serious: Yes (Hospitalization, Other)
  Sender: FDA-Public Use
  Company Number: GB-009507513-1706GBR005573

PATIENT
  Age: 80 Year
  Sex: Female
  Weight: 72.3 kg

DRUGS (14)
  1. SODIUM CHLORIDE. [Concomitant]
     Active Substance: SODIUM CHLORIDE
     Indication: PRODUCT USED FOR UNKNOWN INDICATION
  2. VANCOMYCIN HYDROCHLORIDE. [Concomitant]
     Active Substance: VANCOMYCIN HYDROCHLORIDE
  3. FILGRASTIM [Concomitant]
     Active Substance: FILGRASTIM
  4. MEROPENEM. [Concomitant]
     Active Substance: MEROPENEM
  5. LISINOPRIL. [Concomitant]
     Active Substance: LISINOPRIL
  6. DAPTOMYCIN. [Suspect]
     Active Substance: DAPTOMYCIN
     Dosage: 700 MG, UNK
     Route: 042
     Dates: start: 20170512, end: 20170524
  7. BENDROFLUMETHIAZIDE [Concomitant]
     Active Substance: BENDROFLUMETHIAZIDE
  8. CARBAZOCHROME [Concomitant]
     Active Substance: CARBAZOCHROME
  9. RANITIDINE. [Concomitant]
     Active Substance: RANITIDINE
  10. ARTHROTEC [Concomitant]
     Active Substance: DICLOFENAC SODIUM\MISOPROSTOL
  11. LEVOFLOXACIN. [Concomitant]
     Active Substance: LEVOFLOXACIN
  12. TEICOPLANIN [Concomitant]
     Active Substance: TEICOPLANIN
  13. DAPTOMYCIN. [Suspect]
     Active Substance: DAPTOMYCIN
     Indication: MEDICAL DEVICE SITE JOINT INFECTION
     Dosage: 430 MG, UNK
     Route: 042
     Dates: start: 20170422, end: 20170511
  14. MAGNESIUM (UNSPECIFIED) [Concomitant]
     Active Substance: MAGNESIUM

REACTIONS (4)
  - Tachycardia [Unknown]
  - Eosinophilic pneumonia acute [Not Recovered/Not Resolved]
  - Cough [Unknown]
  - Dyspnoea [Unknown]

NARRATIVE: CASE EVENT DATE: 2017
